FAERS Safety Report 5496354-8 (Version None)
Quarter: 2007Q4

REPORT INFORMATION
  Report Type: 
  Country: None (occurrence: None)
  Receive Date: 20071025
  Receipt Date: 20070329
  Transmission Date: 20080405
  Serious: No
  Sender: FDA-Public Use
  Company Number: A0645210A

PATIENT
  Age: 69 Year
  Sex: Female

DRUGS (8)
  1. ADVAIR DISKUS 100/50 [Suspect]
     Indication: CHRONIC OBSTRUCTIVE PULMONARY DISEASE
     Dosage: 1PUFF TWICE PER DAY
     Route: 055
  2. OXYGEN [Concomitant]
  3. SINGULAIR [Concomitant]
  4. PRILOSEC [Concomitant]
  5. TRICOR [Concomitant]
  6. NERVE MEDICATION [Concomitant]
  7. TYLENOL (CAPLET) [Concomitant]
  8. ALBUTEROL [Concomitant]

REACTIONS (2)
  - APHONIA [None]
  - WEIGHT INCREASED [None]
